FAERS Safety Report 10349459 (Version 2)
Quarter: 2014Q3

REPORT INFORMATION
  Report Type: Spontaneous
  Country: BR (occurrence: BR)
  Receive Date: 20140730
  Receipt Date: 20140804
  Transmission Date: 20150326
  Serious: Yes (Other)
  Sender: FDA-Public Use
  Company Number: BR-ROCHE-1439094

PATIENT
  Sex: Female
  Weight: 62 kg

DRUGS (2)
  1. RIVOTRIL [Suspect]
     Active Substance: CLONAZEPAM
     Indication: ANXIETY
  2. RIVOTRIL [Suspect]
     Active Substance: CLONAZEPAM
     Indication: PANIC DISORDER
     Dosage: FREQUENCY 7 DROPS PER DAY
     Route: 065

REACTIONS (6)
  - Drug withdrawal syndrome [Unknown]
  - Insomnia [Not Recovered/Not Resolved]
  - Drug dose omission [Unknown]
  - Nightmare [Not Recovered/Not Resolved]
  - Blood pressure increased [Not Recovered/Not Resolved]
  - Somnolence [Unknown]
